FAERS Safety Report 7488343-9 (Version None)
Quarter: 2011Q2

REPORT INFORMATION
  Report Type: 
  Country: None (occurrence: None)
  Receive Date: 20110518
  Receipt Date: 20110504
  Transmission Date: 20111010
  Serious: Yes (Other)
  Sender: FDA-Public Use
  Company Number: US-JNJFOC-20110409594

PATIENT
  Sex: Female
  Weight: 90.72 kg

DRUGS (12)
  1. NUCYNTA [Suspect]
     Route: 048
     Dates: start: 20100901, end: 20110101
  2. PROTONIX [Concomitant]
     Indication: GASTROOESOPHAGEAL REFLUX DISEASE
     Route: 048
  3. VENTOLIN [Concomitant]
     Route: 065
  4. ADDERALL 10 [Concomitant]
     Indication: ATTENTION DEFICIT/HYPERACTIVITY DISORDER
     Route: 048
  5. CYMBALTA [Concomitant]
     Indication: PAIN
     Route: 048
  6. NEFAZODONE [Concomitant]
     Indication: DEPRESSION
     Route: 048
  7. NUCYNTA [Suspect]
     Indication: PAIN
     Route: 048
     Dates: start: 20110201
  8. LIDODERM [Concomitant]
     Indication: PAIN
     Dosage: 3 PATCHES A DAY
     Route: 062
  9. NUCYNTA [Suspect]
     Route: 048
     Dates: start: 20110101
  10. GABAPENTIN [Concomitant]
     Indication: NEURALGIA
     Route: 048
  11. CLONAZEPAM [Concomitant]
     Indication: RESTLESS LEGS SYNDROME
     Route: 048
  12. SEROQUEL [Concomitant]
     Indication: INSOMNIA
     Route: 048

REACTIONS (3)
  - DRUG SCREEN POSITIVE [None]
  - DRUG SCREEN FALSE POSITIVE [None]
  - DIABETES MELLITUS [None]
